FAERS Safety Report 25503838 (Version 4)
Quarter: 2025Q3

REPORT INFORMATION
  Report Type: Spontaneous
  Country: EU (occurrence: EU)
  Receive Date: 20250702
  Receipt Date: 20250731
  Transmission Date: 20251020
  Serious: Yes (Other)
  Sender: CELLTRION
  Company Number: EU-AMGEN-ITASP2025021942

PATIENT

DRUGS (4)
  1. ADALIMUMAB [Suspect]
     Active Substance: ADALIMUMAB
     Indication: Hidradenitis
     Dosage: 40 MILLIGRAM, QWK; (ADDITIONAL INFORMATION ON DRUG: DOSAGE1: UNIT=NOT AVAILABLE)
     Route: 065
  2. CLINDAMYCIN [Concomitant]
     Active Substance: CLINDAMYCIN
     Indication: Hidradenitis
     Route: 048
  3. CERTOLIZUMAB PEGOL [Concomitant]
     Active Substance: CERTOLIZUMAB PEGOL
     Indication: Hidradenitis
     Route: 058
  4. CERTOLIZUMAB PEGOL [Concomitant]
     Active Substance: CERTOLIZUMAB PEGOL
     Dosage: 200 MILLIGRAM, Q2WK
     Route: 058

REACTIONS (5)
  - Hidradenitis [Unknown]
  - Gestational diabetes [Unknown]
  - Premature rupture of membranes [Unknown]
  - Therapy partial responder [Unknown]
  - Maternal exposure before pregnancy [Unknown]
